FAERS Safety Report 16821361 (Version 1)
Quarter: 2019Q3

REPORT INFORMATION
  Report Type: Spontaneous
  Country: US (occurrence: US)
  Receive Date: 20190918
  Receipt Date: 20190918
  Transmission Date: 20191005
  Serious: Yes (Other)
  Sender: FDA-Public Use
  Company Number: PHHY2019US214709

PATIENT

DRUGS (1)
  1. MYCOPHENOLATE [Suspect]
     Active Substance: MYCOPHENOLIC ACID
     Indication: OPTIC NEURITIS
     Route: 065

REACTIONS (2)
  - Optic neuritis [Unknown]
  - Product use in unapproved indication [Unknown]
